FAERS Safety Report 18106322 (Version 1)
Quarter: 2020Q3

REPORT INFORMATION
  Report Type: Spontaneous
  Country: IT (occurrence: IT)
  Receive Date: 20200803
  Receipt Date: 20200803
  Transmission Date: 20201103
  Serious: Yes (Other)
  Sender: FDA-Public Use
  Company Number: IT-ASTRAZENECA-2020SE95737

PATIENT
  Age: 73 Year
  Sex: Female
  Weight: 80 kg

DRUGS (5)
  1. DURVALUMAB. [Suspect]
     Active Substance: DURVALUMAB
     Indication: LUNG ADENOCARCINOMA
     Dosage: 800.0MG EVERY CYCLE
     Route: 042
     Dates: start: 20200226
  2. CARDICOR [Concomitant]
     Active Substance: BISOPROLOL
  3. TOTALIP [Concomitant]
     Active Substance: ATORVASTATIN
  4. CARDIOASPIRIN [Concomitant]
     Active Substance: ASPIRIN
  5. LUCEN [Concomitant]
     Active Substance: ESOMEPRAZOLE

REACTIONS (1)
  - Thrombocytopenia [Recovering/Resolving]

NARRATIVE: CASE EVENT DATE: 20200304
